FAERS Safety Report 6153297-4 (Version None)
Quarter: 2009Q2

REPORT INFORMATION
  Report Type: 
  Country: None (occurrence: None)
  Receive Date: 20090409
  Receipt Date: 20090326
  Transmission Date: 20091009
  Serious: Yes (Hospitalization)
  Sender: FDA-Public Use
  Company Number: MK-6022190

PATIENT
  Age: 70 Year
  Sex: Female

DRUGS (3)
  1. METFORMIN HCL [Suspect]
     Indication: TYPE 2 DIABETES MELLITUS
     Dosage: DAILY;ORAL
     Route: 048
  2. ACE INHIBITOR NOS [Concomitant]
  3. NSAID'S [Concomitant]

REACTIONS (6)
  - HAEMODIALYSIS [None]
  - HYPOTENSION [None]
  - LACTIC ACIDOSIS [None]
  - LETHARGY [None]
  - RENAL FAILURE ACUTE [None]
  - SOMNOLENCE [None]
